FAERS Safety Report 5250800-3 (Version None)
Quarter: 2007Q1

REPORT INFORMATION
  Report Type: 
  Country: None (occurrence: None)
  Receive Date: 20070228
  Receipt Date: 20060707
  Transmission Date: 20070707
  Serious: No
  Sender: FDA-Public Use
  Company Number: US-GLAXOSMITHKLINE-A0611445A

PATIENT
  Age: 56 Year
  Sex: Female

DRUGS (1)
  1. LAMICTAL [Suspect]
     Indication: BIPOLAR DISORDER
     Dosage: 100 PER DAY
     Route: 048

REACTIONS (1)
  - INCREASED TENDENCY TO BRUISE [None]
